FAERS Safety Report 19939105 (Version 1)
Quarter: 2021Q4

REPORT INFORMATION
  Report Type: Report from Study
  Country: GB (occurrence: GB)
  Receive Date: 20211011
  Receipt Date: 20211011
  Transmission Date: 20220303
  Serious: Yes (Death, Hospitalization)
  Sender: FDA-Public Use
  Company Number: None

PATIENT

DRUGS (36)
  1. CAPECITABINE [Suspect]
     Active Substance: CAPECITABINE
     Indication: Breast cancer metastatic
     Dosage: 1800 MG, Q2WEEKS
     Route: 048
     Dates: start: 20191011, end: 20191127
  2. LETROZOLE [Suspect]
     Active Substance: LETROZOLE
     Indication: Breast cancer metastatic
     Dosage: 2.5 MILLIGRAM, QD
     Route: 048
     Dates: start: 20171128
  3. DENOSUMAB [Suspect]
     Active Substance: DENOSUMAB
     Indication: Product used for unknown indication
     Dosage: 120 MG, MOST RECENT DOSE PRIOR TO AE 14/FEB/2020); PHARMACEUTICAL DOSE FORM: 231
     Route: 058
     Dates: start: 20180503
  4. PERTUZUMAB [Suspect]
     Active Substance: PERTUZUMAB
     Indication: Breast cancer metastatic
     Dosage: 840 MG, Q3WK
     Route: 042
     Dates: start: 20180116, end: 20180116
  5. TRASTUZUMAB [Suspect]
     Active Substance: TRASTUZUMAB
     Indication: Product used for unknown indication
     Dosage: 882 MILLIGRAM, Q3WK (DOSE MODIFIED)
     Route: 042
     Dates: start: 20180116, end: 20180116
  6. AMOXICILLIN [Concomitant]
     Active Substance: AMOXICILLIN
     Indication: Urinary tract infection
     Dosage: 500 MG, 0.33 DAY
     Route: 042
     Dates: start: 20190330, end: 20190401
  7. ASPIRIN [Concomitant]
     Active Substance: ASPIRIN
     Dosage: 75 MILLIGRAM, QD
     Route: 048
     Dates: start: 2019, end: 2019
  8. CEPHALEXIN [Concomitant]
     Active Substance: CEPHALEXIN
     Indication: Urinary tract infection
     Dosage: UNK
     Route: 048
     Dates: start: 20190208, end: 2019
  9. CLOTRIMAZOLE [Concomitant]
     Active Substance: CLOTRIMAZOLE
     Dosage: 1 %, 0.5 DAY
     Route: 061
     Dates: start: 202002
  10. COCODAMOL [Concomitant]
     Active Substance: ACETAMINOPHEN\CODEINE PHOSPHATE
     Dosage: 30 MILLIGRAM
     Route: 048
     Dates: end: 20200512
  11. CYCLIZINE [Concomitant]
     Active Substance: CYCLIZINE
     Dosage: 50 MG, 0.33 DAY
     Route: 048
     Dates: start: 2019, end: 20190403
  12. DEXAMETHASONE [Concomitant]
     Active Substance: DEXAMETHASONE
     Indication: Metastases to central nervous system
     Dosage: 2 MILLIGRAM, QD
     Route: 048
     Dates: start: 20190425, end: 2019
  13. ENOXAPARIN [Concomitant]
     Active Substance: ENOXAPARIN
     Dosage: 80 MG, QD
     Route: 058
     Dates: start: 202002
  14. FOLIC ACID [Concomitant]
     Active Substance: FOLIC ACID
     Dosage: 5 MILLIGRAM, QD
     Route: 048
     Dates: start: 20160211
  15. GLYCOPYRROLATE [Concomitant]
     Active Substance: GLYCOPYRROLATE
     Dosage: 400 MICROGRAM
     Route: 058
     Dates: start: 20190330
  16. MORPHINE SULFATE [Concomitant]
     Active Substance: MORPHINE SULFATE
     Dosage: 2.5 MG
     Route: 058
     Dates: start: 20190330
  17. HYDROCORTISONE [Concomitant]
     Active Substance: HYDROCORTISONE
     Dosage: 0.5 %
     Route: 061
     Dates: start: 20191025, end: 2019
  18. LACOSAMIDE [Concomitant]
     Active Substance: LACOSAMIDE
     Dosage: 50 MILLIGRAM, 0.5 DAY
     Route: 048
     Dates: start: 20200512, end: 20200519
  19. LANSOPRAZOLE [Concomitant]
     Active Substance: LANSOPRAZOLE
     Indication: Metastases to central nervous system
     Dosage: 30 MILLIGRAM, QD
     Route: 048
     Dates: start: 201812
  20. LEVETIRACETAM [Concomitant]
     Active Substance: LEVETIRACETAM
     Indication: Seizure
     Dosage: 1500 MILLIGRAM, 0.5 DAY
     Route: 048
  21. METFORMIN [Concomitant]
     Active Substance: METFORMIN HYDROCHLORIDE
     Dosage: 500 MILLIGRAM, QD
     Route: 048
     Dates: start: 2018, end: 2018
  22. METRONIDAZOLE [Concomitant]
     Active Substance: METRONIDAZOLE
     Indication: Diarrhoea
     Dosage: 400 MILLIGRAM, 0.33 DAY
     Route: 048
     Dates: start: 20190401, end: 20190403
  23. MIDAZOLAM [Concomitant]
     Active Substance: MIDAZOLAM
     Dosage: 10 MG
     Route: 050
     Dates: start: 2020
  24. NIFEDIPINE [Concomitant]
     Active Substance: NIFEDIPINE
     Dosage: 60 MILLIGRAM, QD
     Route: 048
     Dates: end: 2018
  25. NITROFURANTOIN [Concomitant]
     Active Substance: NITROFURANTOIN
     Indication: Urinary tract infection
     Dosage: 50 MG,  0.25 DAY
     Route: 048
     Dates: start: 20190403, end: 20190405
  26. NYSTATIN [Concomitant]
     Active Substance: NYSTATIN
     Dosage: 1 MILLIGRAM, EVERY 4 DAY
     Route: 048
     Dates: start: 20200505, end: 20200511
  27. ONDANSETRON [Concomitant]
     Active Substance: ONDANSETRON
     Dosage: 4 MILLIGRAM, 0.33 DAY
     Route: 048
     Dates: start: 2019
  28. ACETAMINOPHEN [Concomitant]
     Active Substance: ACETAMINOPHEN
     Dosage: 500 MG
     Route: 048
  29. POTASSIUM CHLORIDE [Concomitant]
     Active Substance: POTASSIUM CHLORIDE
     Indication: Hypokalaemia
     Dosage: 1 OTHER, QD
     Route: 042
     Dates: start: 20190329, end: 20190401
  30. SODIUM CHLORIDE [Concomitant]
     Active Substance: SODIUM CHLORIDE
     Indication: Hypokalaemia
     Dosage: UNK, QD (1 OTHER)
     Route: 042
     Dates: start: 20190329, end: 20190401
  31. PROCHLORPERAZINE [Concomitant]
     Active Substance: PROCHLORPERAZINE
     Dosage: 3 MILLIGRAM, 0.5 DAY
     Dates: start: 2020
  32. ROSUVASTATIN [Concomitant]
     Active Substance: ROSUVASTATIN
     Dosage: 5 MILLIGRAM, QD
     Route: 048
     Dates: end: 2019
  33. SODIUM CHLORIDE [Concomitant]
     Active Substance: SODIUM CHLORIDE
     Dosage: UNK
  34. SERTRALINE [Concomitant]
     Active Substance: SERTRALINE HYDROCHLORIDE
     Dosage: 50 MILLIGRAM, QD
     Route: 048
  35. SIMVASTATIN [Concomitant]
     Active Substance: SIMVASTATIN
     Dosage: 20 MILLIGRAM, QD
     Route: 048
     Dates: start: 2019
  36. VANCOMYCIN [Concomitant]
     Active Substance: VANCOMYCIN
     Dosage: 125 MILLIGRAM, 0.25 DAY
     Route: 050
     Dates: start: 20200302, end: 20200316

REACTIONS (2)
  - Disease progression [Fatal]
  - Dyspnoea [Recovered/Resolved]

NARRATIVE: CASE EVENT DATE: 20200224
